FAERS Safety Report 24031092 (Version 1)
Quarter: 2024Q2

REPORT INFORMATION
  Report Type: Spontaneous
  Country: SE (occurrence: SE)
  Receive Date: 20240628
  Receipt Date: 20240628
  Transmission Date: 20240716
  Serious: Yes (Hospitalization, Other)
  Sender: FDA-Public Use
  Company Number: SE-B.Braun Medical Inc.-2158667

PATIENT
  Age: 36 Year
  Sex: Female

DRUGS (9)
  1. ACETAMINOPHEN [Suspect]
     Active Substance: ACETAMINOPHEN
  2. LITHIUM SULFATE [Suspect]
     Active Substance: LITHIUM SULFATE
  3. ZOPICLONE [Suspect]
     Active Substance: ZOPICLONE
  4. CLOMETHIAZOLE [Suspect]
     Active Substance: CLOMETHIAZOLE
  5. LAMOTRIGINE [Suspect]
     Active Substance: LAMOTRIGINE
  6. TRANYLCYPROMINE\TRANYLCYPROMINE SULFATE [Suspect]
     Active Substance: TRANYLCYPROMINE\TRANYLCYPROMINE SULFATE
  7. PROPIOMAZINE [Suspect]
     Active Substance: PROPIOMAZINE
  8. CHLORPROTHIXENE [Suspect]
     Active Substance: CHLORPROTHIXENE
  9. PROMETHAZINE HYDROCHLORIDE\THIOUREA [Suspect]
     Active Substance: PROMETHAZINE HYDROCHLORIDE\THIOUREA

REACTIONS (8)
  - Intentional overdose [Recovering/Resolving]
  - Pneumonia aspiration [Recovering/Resolving]
  - Pneumonia staphylococcal [Recovering/Resolving]
  - Dependence on respirator [Recovering/Resolving]
  - Serotonin syndrome [Recovering/Resolving]
  - Suicide attempt [Recovering/Resolving]
  - Toxicity to various agents [Recovering/Resolving]
  - Drug abuse [Recovering/Resolving]
